FAERS Safety Report 12498480 (Version 21)
Quarter: 2018Q2

REPORT INFORMATION
  Report Type: Report from Study
  Country: CA (occurrence: CA)
  Receive Date: 20160627
  Receipt Date: 20180516
  Transmission Date: 20180711
  Serious: Yes (Hospitalization, Other)
  Sender: FDA-Public Use
  Company Number: CA-ROCHE-1639069

PATIENT
  Age: 64 Year
  Sex: Female
  Weight: 124.1 kg

DRUGS (22)
  1. ACTEMRA [Suspect]
     Active Substance: TOCILIZUMAB
     Indication: RHEUMATOID ARTHRITIS
     Route: 042
     Dates: start: 201211
  2. ACTEMRA [Suspect]
     Active Substance: TOCILIZUMAB
     Dosage: FIRST RPAP DOSE
     Route: 042
     Dates: start: 20150505
  3. ACTEMRA [Suspect]
     Active Substance: TOCILIZUMAB
     Route: 042
     Dates: start: 2017
  4. CYCLOBENZAPRINE. [Concomitant]
     Active Substance: CYCLOBENZAPRINE
  5. DILAUDID [Concomitant]
     Active Substance: HYDROMORPHONE HYDROCHLORIDE
  6. RIVASA [Concomitant]
     Active Substance: ASPIRIN
  7. ACTEMRA [Suspect]
     Active Substance: TOCILIZUMAB
     Route: 042
     Dates: start: 20150702
  8. NAPROSYN [Concomitant]
     Active Substance: NAPROXEN
     Route: 048
  9. PREGABALINE [Concomitant]
     Active Substance: PREGABALIN
     Route: 065
  10. ACTEMRA [Suspect]
     Active Substance: TOCILIZUMAB
     Dosage: START DATE; SINCE 1 YEAR; DOSE MAINTAINED
     Route: 042
  11. VITAMIN B12 [Concomitant]
     Active Substance: CYANOCOBALAMIN
  12. LORAZEPAM. [Concomitant]
     Active Substance: LORAZEPAM
  13. METOPROLOL. [Concomitant]
     Active Substance: METOPROLOL
  14. ACTEMRA [Suspect]
     Active Substance: TOCILIZUMAB
     Route: 042
     Dates: start: 20180404
  15. RAMIPRIL. [Concomitant]
     Active Substance: RAMIPRIL
  16. D TABS [Concomitant]
  17. ACTEMRA [Suspect]
     Active Substance: TOCILIZUMAB
     Route: 042
     Dates: start: 20150731
  18. PAROXETINE. [Concomitant]
     Active Substance: PAROXETINE
  19. ACTEMRA [Suspect]
     Active Substance: TOCILIZUMAB
     Route: 042
     Dates: start: 20151023
  20. ACTEMRA [Suspect]
     Active Substance: TOCILIZUMAB
     Dosage: 24 INFUSION
     Route: 042
     Dates: start: 20180108
  21. LANSOPRAZOLE. [Concomitant]
     Active Substance: LANSOPRAZOLE
  22. METHOTREXATE. [Concomitant]
     Active Substance: METHOTREXATE
     Route: 048

REACTIONS (23)
  - Impaired healing [Recovering/Resolving]
  - Arthropathy [Unknown]
  - Dysgeusia [Unknown]
  - Weight decreased [Recovered/Resolved]
  - Blood pressure decreased [Unknown]
  - Sepsis [Unknown]
  - Headache [Recovered/Resolved]
  - Impaired healing [Not Recovered/Not Resolved]
  - Wound dehiscence [Not Recovered/Not Resolved]
  - Joint swelling [Unknown]
  - Wound infection [Not Recovered/Not Resolved]
  - Weight increased [Unknown]
  - Arthralgia [Unknown]
  - Staphylococcal infection [Unknown]
  - Impaired healing [Not Recovered/Not Resolved]
  - Haematoma [Unknown]
  - Myalgia [Unknown]
  - Limb injury [Not Recovered/Not Resolved]
  - Wound complication [Unknown]
  - Nasal congestion [Recovered/Resolved]
  - Sinusitis [Recovered/Resolved]
  - Pain [Unknown]
  - Disability assessment scale score decreased [Recovered/Resolved]

NARRATIVE: CASE EVENT DATE: 2015
